FAERS Safety Report 5818542-0 (Version None)
Quarter: 2008Q3

REPORT INFORMATION
  Report Type: 
  Country: None (occurrence: None)
  Receive Date: 20080718
  Receipt Date: 20080702
  Transmission Date: 20090109
  Serious: No
  Sender: FDA-Public Use
  Company Number: 8034231

PATIENT

DRUGS (1)
  1. KEPPRA [Suspect]
     Dosage: 1000 MG 3/D

REACTIONS (1)
  - WRONG TECHNIQUE IN DRUG USAGE PROCESS [None]
